FAERS Safety Report 9445002 (Version 1)
Quarter: 2013Q3

REPORT INFORMATION
  Report Type: Spontaneous
  Country: US (occurrence: None)
  Receive Date: 20130729
  Receipt Date: 20130729
  Transmission Date: 20140515
  Serious: Yes (Other)
  Sender: FDA-Public Use
  Company Number: 2013037063

PATIENT
  Age: 47 Year
  Sex: Female

DRUGS (1)
  1. INTRAVENOUS IMMUNOGLOBULIN (IMMUNE GLOBULIN INTRAVENOUS (HUMAN)) [Suspect]
     Indication: GUILLAIN-BARRE SYNDROME

REACTIONS (14)
  - Drug ineffective for unapproved indication [None]
  - Hypertension [None]
  - Sick sinus syndrome [None]
  - Heart rate abnormal [None]
  - Flushing [None]
  - Nausea [None]
  - Mydriasis [None]
  - Ophthalmoplegia [None]
  - Cerebellar ataxia [None]
  - Muscular weakness [None]
  - Areflexia [None]
  - Pain [None]
  - Dysaesthesia [None]
  - Posterior reversible encephalopathy syndrome [None]
